FAERS Safety Report 4383824-9 (Version None)
Quarter: 2004Q2

REPORT INFORMATION
  Report Type: 
  Country: None (occurrence: None)
  Receive Date: 20040608
  Receipt Date: 20030911
  Transmission Date: 20050107
  Serious: Yes (Other)
  Sender: FDA-Public Use
  Company Number: 200313297BCC

PATIENT
  Age: 33 Year
  Sex: Female
  Weight: 72.5755 kg

DRUGS (2)
  1. ALEVE [Suspect]
     Indication: NECK PAIN
     Dosage: 200 MG, ONCE, ORAL
     Route: 048
     Dates: start: 20030908
  2. ALBUTEROL [Concomitant]

REACTIONS (1)
  - ASTHMA [None]
